FAERS Safety Report 24130950 (Version 1)
Quarter: 2024Q3

REPORT INFORMATION
  Report Type: Report from Study
  Country: GB (occurrence: GB)
  Receive Date: 20240724
  Receipt Date: 20240724
  Transmission Date: 20241016
  Serious: Yes (Other)
  Sender: BAXTER
  Company Number: GB-BAXTER-2024BAX021522

PATIENT
  Age: 48 Year
  Sex: Female

DRUGS (11)
  1. CLINIMIX [Suspect]
     Active Substance: ALANINE\ARGININE\CALCIUM CHLORIDE\DEXTROSE\DEXTROSE MONOHYDRATE\GLYCINE\HISTIDINE\ISOLEUCINE\LEUCINE
     Indication: Parenteral nutrition
     Dosage: 1600 MLS IN 2 PER WEEK
     Route: 042
     Dates: end: 20240715
  2. CLINIMIX [Suspect]
     Active Substance: ALANINE\ARGININE\CALCIUM CHLORIDE\DEXTROSE\DEXTROSE MONOHYDRATE\GLYCINE\HISTIDINE\ISOLEUCINE\LEUCINE
     Dosage: DAILY
     Route: 042
  3. OLIMEL [Suspect]
     Active Substance: AMINO ACIDS\DEXTROSE\SOYBEAN OIL
     Indication: Parenteral nutrition
     Dosage: 2000 MLS IN 4 PER WEEK
     Route: 042
     Dates: end: 20240715
  4. OLIMEL [Suspect]
     Active Substance: AMINO ACIDS\DEXTROSE\SOYBEAN OIL
     Dosage: DAILY
     Route: 042
  5. IRON [Suspect]
     Active Substance: IRON
     Indication: Parenteral nutrition
     Dosage: (546 MLS OF THE 1600 MLS)
     Route: 042
     Dates: end: 20240715
  6. IRON [Suspect]
     Active Substance: IRON
     Dosage: DAILY
     Route: 042
  7. FOLIC ACID\IRON\MINERALS\VITAMINS [Suspect]
     Active Substance: FOLIC ACID\IRON\MINERALS\VITAMINS
     Indication: Parenteral nutrition
     Dosage: AT AN UNSPECIFIED DOSE 1 DAY
     Route: 042
     Dates: end: 20240715
  8. FOLIC ACID\IRON\MINERALS\VITAMINS [Suspect]
     Active Substance: FOLIC ACID\IRON\MINERALS\VITAMINS
     Dosage: DAILY
     Route: 042
  9. TAUROLIDINE [Suspect]
     Active Substance: TAUROLIDINE
     Indication: Parenteral nutrition
     Dosage: 1.6 MLS IN 6 WEEK
     Route: 042
     Dates: end: 20240715
  10. TAUROLIDINE [Suspect]
     Active Substance: TAUROLIDINE
     Dosage: DAILY
     Route: 042
  11. UNSPECIFIED INGREDIENT [Suspect]
     Active Substance: UNSPECIFIED INGREDIENT
     Route: 065

REACTIONS (14)
  - Feeling cold [Unknown]
  - Palpitations [Recovering/Resolving]
  - Malaise [Unknown]
  - Skin burning sensation [Recovering/Resolving]
  - Pain [Unknown]
  - Chills [Unknown]
  - Nausea [Recovering/Resolving]
  - Pyrexia [Unknown]
  - Dry skin [Recovered/Resolved]
  - Infusion related reaction [Recovered/Resolved]
  - Body temperature increased [Recovered/Resolved]
  - Abdominal pain [Recovered/Resolved]
  - Gastrointestinal stoma complication [Recovered/Resolved]
  - Renal pain [Recovered/Resolved]

NARRATIVE: CASE EVENT DATE: 20240704
